FAERS Safety Report 17914756 (Version 2)
Quarter: 2020Q2

REPORT INFORMATION
  Report Type: Spontaneous
  Country: JP (occurrence: JP)
  Receive Date: 20200618
  Receipt Date: 20200629
  Transmission Date: 20200714
  Serious: Yes (Death)
  Sender: FDA-Public Use
  Company Number: JP-SYNEX-T202002745

PATIENT
  Age: 1 Month
  Sex: Male
  Weight: 4 kg

DRUGS (2)
  1. INOFLO [Suspect]
     Active Substance: NITRIC OXIDE
     Indication: PULMONARY ARTERIAL HYPERTENSION
     Dosage: UNK, INHALATIONAL
     Route: 055
  2. EPOPROSTENOL. [Concomitant]
     Active Substance: EPOPROSTENOL
     Indication: PULMONARY ARTERIAL HYPERTENSION
     Dosage: UNK
     Route: 042

REACTIONS (2)
  - Cardiac failure [Fatal]
  - Therapy non-responder [Unknown]
